FAERS Safety Report 4895937-3 (Version None)
Quarter: 2006Q1

REPORT INFORMATION
  Report Type: 
  Country: None (occurrence: None)
  Receive Date: 20060125
  Receipt Date: 20051231
  Transmission Date: 20060701
  Serious: Yes (Other)
  Sender: FDA-Public Use
  Company Number: CN200601000274

PATIENT
  Age: 26 Year
  Sex: Female

DRUGS (1)
  1. CECLOR [Suspect]
     Dosage: OTHER, ORAL
     Route: 048
     Dates: start: 20051231, end: 20051231

REACTIONS (4)
  - ATRIAL FIBRILLATION [None]
  - DRUG HYPERSENSITIVITY [None]
  - HYPOAESTHESIA ORAL [None]
  - WRONG DRUG ADMINISTERED [None]
